FAERS Safety Report 25156937 (Version 1)
Quarter: 2025Q2

REPORT INFORMATION
  Report Type: Spontaneous
  Country: US (occurrence: US)
  Receive Date: 20250403
  Receipt Date: 20250403
  Transmission Date: 20250717
  Serious: No
  Sender: JOHNSON AND JOHNSON
  Company Number: US-JNJFOC-20250330582

PATIENT
  Sex: Male

DRUGS (2)
  1. STELARA [Suspect]
     Active Substance: USTEKINUMAB
     Indication: Crohn^s disease
  2. STELARA [Suspect]
     Active Substance: USTEKINUMAB
     Indication: Enteropathic spondylitis

REACTIONS (4)
  - Arthritis [Unknown]
  - Therapeutic product effect decreased [Unknown]
  - Inflammation [Unknown]
  - Enthesopathy [Unknown]
